FAERS Safety Report 9348712 (Version 2)
Quarter: 2013Q3

REPORT INFORMATION
  Report Type: Spontaneous
  Country: US (occurrence: US)
  Receive Date: 20130614
  Receipt Date: 20130911
  Transmission Date: 20140515
  Serious: Yes (Hospitalization)
  Sender: FDA-Public Use
  Company Number: US-BAYER-2013-071938

PATIENT
  Age: 18 Year
  Sex: Female
  Weight: 62 kg

DRUGS (5)
  1. YASMIN [Suspect]
     Indication: ACNE
     Dosage: UNK
     Dates: end: 2008
  2. OCELLA [Suspect]
     Indication: ACNE
     Dosage: UNK
     Dates: end: 2008
  3. PROACTIV SOLUTION RENEWING CLEANSER [Concomitant]
  4. PHENERGAN [Concomitant]
  5. DEMEROL [Concomitant]

REACTIONS (2)
  - Splenic infarction [None]
  - Arterial thrombosis [None]
